FAERS Safety Report 15410961 (Version 1)
Quarter: 2018Q3

REPORT INFORMATION
  Report Type: Spontaneous
  Country: BR (occurrence: BR)
  Receive Date: 20180921
  Receipt Date: 20180921
  Transmission Date: 20181010
  Serious: Yes (Hospitalization)
  Sender: FDA-Public Use
  Company Number: BR-AMGEN-BRASP2018098650

PATIENT
  Age: 52 Year
  Sex: Female

DRUGS (1)
  1. ENBREL [Suspect]
     Active Substance: ETANERCEPT
     Indication: PRODUCT USED FOR UNKNOWN INDICATION
     Dosage: UNK
     Route: 065
     Dates: start: 20180629

REACTIONS (5)
  - Abdominal pain [Unknown]
  - Back pain [Unknown]
  - Pain [Unknown]
  - Injection site erythema [Unknown]
  - Headache [Unknown]

NARRATIVE: CASE EVENT DATE: 20180904
